FAERS Safety Report 23789077 (Version 1)
Quarter: 2024Q2

REPORT INFORMATION
  Report Type: Spontaneous
  Country: CN (occurrence: CN)
  Receive Date: 20240426
  Receipt Date: 20240426
  Transmission Date: 20240715
  Serious: Yes (Life-Threatening, Hospitalization, Other)
  Sender: FDA-Public Use
  Company Number: CN-JNJFOC-20240455228

PATIENT
  Age: 13 Year
  Sex: Male
  Weight: 50 kg

DRUGS (3)
  1. RISPERDAL [Suspect]
     Active Substance: RISPERIDONE
     Indication: Depression
     Dosage: 60 TABLETS, 1 MG PER TABLET
     Route: 048
  2. SERTRALINE HYDROCHLORIDE [Suspect]
     Active Substance: SERTRALINE HYDROCHLORIDE
     Indication: Depression
     Dosage: 56 TABLETS (50 MG PER TABLET)
     Route: 048
  3. FLUVOXAMINE MALEATE [Suspect]
     Active Substance: FLUVOXAMINE MALEATE
     Indication: Depression
     Dosage: 90 TABLETS (50 MG PER TABLET) 3 HR AGO
     Route: 048

REACTIONS (12)
  - Tachypnoea [Recovering/Resolving]
  - Intentional overdose [Unknown]
  - Toxicity to various agents [Recovering/Resolving]
  - Systolic dysfunction [Recovering/Resolving]
  - Hypoxia [Recovering/Resolving]
  - Suicide attempt [Unknown]
  - Cardiac disorder [Recovering/Resolving]
  - Tachycardia [Recovering/Resolving]
  - Hypotension [Recovering/Resolving]
  - Extrapyramidal disorder [Recovering/Resolving]
  - Seizure [Recovered/Resolved]
  - Off label use [Unknown]
